FAERS Safety Report 17017511 (Version 1)
Quarter: 2019Q4

REPORT INFORMATION
  Report Type: Spontaneous
  Country: FR (occurrence: FR)
  Receive Date: 20191111
  Receipt Date: 20191111
  Transmission Date: 20200122
  Serious: Yes (Hospitalization)
  Sender: FDA-Public Use
  Company Number: FR-ELI_LILLY_AND_COMPANY-FR201911000773

PATIENT
  Age: 62 Year
  Sex: Female
  Weight: 63 kg

DRUGS (4)
  1. CYMBALTA [Suspect]
     Active Substance: DULOXETINE HYDROCHLORIDE
     Indication: TOXICITY TO VARIOUS AGENTS
     Dosage: 660 MG, SINGLE
     Route: 048
     Dates: start: 20190216, end: 20190216
  2. CYMBALTA [Suspect]
     Active Substance: DULOXETINE HYDROCHLORIDE
     Indication: TOXICITY TO VARIOUS AGENTS
     Dosage: 180 MG, SINGLE
     Route: 048
     Dates: start: 20190216, end: 20190216
  3. SERESTA [Suspect]
     Active Substance: OXAZEPAM
     Indication: TOXICITY TO VARIOUS AGENTS
     Dosage: 350 MG, SINGLE
     Route: 048
     Dates: start: 20190216, end: 20190216
  4. TRAMADOL HYDROCHLORIDE. [Suspect]
     Active Substance: TRAMADOL HYDROCHLORIDE
     Indication: TOXICITY TO VARIOUS AGENTS
     Dosage: 1500 MG, SINGLE
     Route: 048
     Dates: start: 20190216, end: 20190216

REACTIONS (5)
  - Disturbance in attention [Recovered/Resolved]
  - Intentional overdose [Unknown]
  - Hepatocellular injury [Recovered/Resolved]
  - Serotonin syndrome [Recovered/Resolved]
  - Toxicity to various agents [Unknown]

NARRATIVE: CASE EVENT DATE: 20190216
